FAERS Safety Report 25002986 (Version 1)
Quarter: 2025Q1

REPORT INFORMATION
  Report Type: Spontaneous
  Country: CO (occurrence: CO)
  Receive Date: 20250224
  Receipt Date: 20250224
  Transmission Date: 20250408
  Serious: Yes (Hospitalization, Other)
  Sender: NOVO NORDISK
  Company Number: CO-NOVOPROD-1371485

PATIENT
  Age: 40 Year
  Sex: Female
  Weight: 60 kg

DRUGS (10)
  1. NOVORAPID [Suspect]
     Active Substance: INSULIN ASPART
     Indication: Type 2 diabetes mellitus
     Dosage: 32 IU, QD
     Route: 058
  2. AMLODIPINE [Concomitant]
     Active Substance: AMLODIPINE BESYLATE
  3. PREGABALIN [Concomitant]
     Active Substance: PREGABALIN
  4. PREGABALIN [Concomitant]
     Active Substance: PREGABALIN
  5. INSULIN GLARGINE [Concomitant]
     Active Substance: INSULIN GLARGINE
  6. ESOMEPRAZOLE [Concomitant]
     Active Substance: ESOMEPRAZOLE
  7. DAPAGLIFLOZIN [Concomitant]
     Active Substance: DAPAGLIFLOZIN
  8. TELMISARTAN [Concomitant]
     Active Substance: TELMISARTAN
  9. CARVEDILOL [Concomitant]
     Active Substance: CARVEDILOL
  10. ROSUVASTATIN [Concomitant]
     Active Substance: ROSUVASTATIN

REACTIONS (3)
  - Dyspnoea [Unknown]
  - Respiratory tract inflammation [Unknown]
  - Oxygen saturation decreased [Unknown]
